FAERS Safety Report 4616796-X (Version None)
Quarter: 2005Q2

REPORT INFORMATION
  Report Type: 
  Country: None (occurrence: None)
  Receive Date: 20050311
  Receipt Date: 20050124
  Transmission Date: 20051028
  Serious: Yes (Other)
  Sender: FDA-Public Use
  Company Number: 2005-00110

PATIENT
  Age: 76 Year
  Sex: Male
  Weight: 78.5 kg

DRUGS (4)
  1. VELCADE [Suspect]
     Indication: MULTIPLE MYELOMA
     Dosage: 1.90 MG, INTRAVENOUS
     Route: 042
     Dates: start: 20041126
  2. ZOFRAN (ONDANSETRON HYDRCHLORIDE) [Concomitant]
  3. AREDIA [Concomitant]
  4. ALLOPURINOL [Concomitant]

REACTIONS (7)
  - DERMATITIS EXFOLIATIVE [None]
  - DRY EYE [None]
  - DRY SKIN [None]
  - ERYTHEMA [None]
  - EYE IRRITATION [None]
  - OCULAR HYPERAEMIA [None]
  - SKIN WARM [None]
